FAERS Safety Report 5279902-2 (Version None)
Quarter: 2007Q1

REPORT INFORMATION
  Report Type: 
  Country: None (occurrence: None)
  Receive Date: 20070329
  Receipt Date: 20070320
  Transmission Date: 20070707
  Serious: Yes (Hospitalization, Other)
  Sender: FDA-Public Use
  Company Number: HQWYE084102JAN07

PATIENT
  Age: 79 Year
  Sex: Female

DRUGS (10)
  1. OSTELUC 200 [Suspect]
     Indication: LUMBAR VERTEBRAL FRACTURE
     Route: 048
     Dates: start: 20050315, end: 20060622
  2. OTSUJITOU [Concomitant]
     Indication: CONSTIPATION
     Route: 048
     Dates: end: 20050626
  3. TAKEPRON [Concomitant]
     Indication: GASTRIC ULCER
  4. LAC B [Concomitant]
     Indication: CONSTIPATION
     Route: 048
  5. TOFRANIL [Concomitant]
     Indication: DEPRESSION
     Route: 048
     Dates: end: 20050616
  6. DEPAS [Concomitant]
     Indication: DEPRESSION
     Route: 048
  7. ALOSENN [Concomitant]
     Indication: CONSTIPATION
     Route: 048
     Dates: end: 20050626
  8. MAGNESIUM OXIDE [Concomitant]
     Indication: CONSTIPATION
     Route: 048
     Dates: end: 20050626
  9. SENNA LIQUID EXTRACT [Concomitant]
     Indication: CONSTIPATION
  10. GLORIAMIN [Concomitant]
     Indication: GASTRIC ULCER

REACTIONS (3)
  - COLITIS COLLAGENOUS [None]
  - COLON CANCER [None]
  - DIARRHOEA [None]
